FAERS Safety Report 24424444 (Version 1)
Quarter: 2024Q4

REPORT INFORMATION
  Report Type: Spontaneous
  Country: CA (occurrence: CA)
  Receive Date: 20241010
  Receipt Date: 20241010
  Transmission Date: 20250115
  Serious: Yes (Death)
  Sender: ROCHE
  Company Number: CA-ROCHE-10000097937

PATIENT

DRUGS (1)
  1. BEVACIZUMAB [Suspect]
     Active Substance: BEVACIZUMAB
     Indication: Neovascular age-related macular degeneration
     Route: 065

REACTIONS (7)
  - COVID-19 [Fatal]
  - Cerebrovascular accident [Fatal]
  - Death [Fatal]
  - Drug effective for unapproved indication [Fatal]
  - Drug ineffective for unapproved indication [Fatal]
  - Neovascular age-related macular degeneration [Fatal]
  - Off label use [Fatal]
